FAERS Safety Report 25029496 (Version 1)
Quarter: 2025Q1

REPORT INFORMATION
  Report Type: Spontaneous
  Country: CA (occurrence: CA)
  Receive Date: 20250303
  Receipt Date: 20250303
  Transmission Date: 20250408
  Serious: Yes (Hospitalization, Other)
  Sender: CELLTRION
  Company Number: CA-CELLTRION INC.-2025CA005933

PATIENT

DRUGS (2)
  1. ADALIMUMAB [Suspect]
     Active Substance: ADALIMUMAB
     Indication: Psoriasis
     Route: 065
  2. SIMLANDI [Suspect]
     Active Substance: ADALIMUMAB-RYVK
     Indication: Psoriasis
     Route: 058

REACTIONS (5)
  - Complication associated with device [Recovering/Resolving]
  - Surgery [Recovering/Resolving]
  - Product storage error [Recovering/Resolving]
  - Inappropriate schedule of product administration [Recovering/Resolving]
  - Overdose [Recovering/Resolving]
